FAERS Safety Report 13107239 (Version 1)
Quarter: 2017Q1

REPORT INFORMATION
  Report Type: Spontaneous
  Country: ID (occurrence: ID)
  Receive Date: 20170112
  Receipt Date: 20170112
  Transmission Date: 20170428
  Serious: Yes (Other)
  Sender: FDA-Public Use
  Company Number: ID-ROCHE-1878429

PATIENT
  Age: 60 Year
  Sex: Male

DRUGS (2)
  1. IRESSA [Suspect]
     Active Substance: GEFITINIB
     Indication: BONE CANCER
     Route: 065
  2. BONDRONAT [Suspect]
     Active Substance: IBANDRONIC ACID
     Indication: BONE CANCER
     Route: 042

REACTIONS (1)
  - Blood creatinine increased [Unknown]
